FAERS Safety Report 5838061-5 (Version None)
Quarter: 2008Q3

REPORT INFORMATION
  Report Type: 
  Country: None (occurrence: None)
  Receive Date: 20080808
  Receipt Date: 20080425
  Transmission Date: 20090109
  Serious: No
  Sender: FDA-Public Use
  Company Number: A0724870A

PATIENT
  Age: 48 Year
  Sex: Male

DRUGS (2)
  1. PAXIL [Suspect]
     Indication: DEPRESSION
     Dosage: 10MG TWICE PER DAY
     Route: 048
     Dates: start: 19960101
  2. NO CONCURRENT MEDICATION [Concomitant]

REACTIONS (6)
  - DIARRHOEA [None]
  - EJACULATION FAILURE [None]
  - SEXUAL DYSFUNCTION [None]
  - SLEEP DISORDER [None]
  - THERAPEUTIC RESPONSE UNEXPECTED [None]
  - YAWNING [None]
